FAERS Safety Report 25088274 (Version 1)
Quarter: 2025Q1

REPORT INFORMATION
  Report Type: Spontaneous
  Country: US (occurrence: US)
  Receive Date: 20250318
  Receipt Date: 20250318
  Transmission Date: 20250409
  Serious: Yes (Life-Threatening, Hospitalization)
  Sender: MYLAN
  Company Number: US-MYLANLABS-2025M1022218

PATIENT
  Age: 56 Year
  Sex: Male

DRUGS (24)
  1. DILTIAZEM [Suspect]
     Active Substance: DILTIAZEM
     Indication: Atrial flutter
  2. DILTIAZEM [Suspect]
     Active Substance: DILTIAZEM
     Route: 042
  3. DILTIAZEM [Suspect]
     Active Substance: DILTIAZEM
     Route: 042
  4. DILTIAZEM [Suspect]
     Active Substance: DILTIAZEM
  5. MILRINONE [Suspect]
     Active Substance: MILRINONE
     Indication: Cardiogenic shock
  6. MILRINONE [Suspect]
     Active Substance: MILRINONE
     Route: 065
  7. MILRINONE [Suspect]
     Active Substance: MILRINONE
     Route: 065
  8. MILRINONE [Suspect]
     Active Substance: MILRINONE
  9. NOREPINEPHRINE [Suspect]
     Active Substance: NOREPINEPHRINE
     Indication: Cardiogenic shock
  10. NOREPINEPHRINE [Suspect]
     Active Substance: NOREPINEPHRINE
     Route: 065
  11. NOREPINEPHRINE [Suspect]
     Active Substance: NOREPINEPHRINE
     Route: 065
  12. NOREPINEPHRINE [Suspect]
     Active Substance: NOREPINEPHRINE
  13. EPINEPHRINE [Suspect]
     Active Substance: EPINEPHRINE
     Indication: Cardiogenic shock
  14. EPINEPHRINE [Suspect]
     Active Substance: EPINEPHRINE
     Route: 065
  15. EPINEPHRINE [Suspect]
     Active Substance: EPINEPHRINE
     Route: 065
  16. EPINEPHRINE [Suspect]
     Active Substance: EPINEPHRINE
  17. AMIODARONE [Suspect]
     Active Substance: AMIODARONE
     Indication: Cardiogenic shock
  18. AMIODARONE [Suspect]
     Active Substance: AMIODARONE
     Route: 065
  19. AMIODARONE [Suspect]
     Active Substance: AMIODARONE
     Route: 065
  20. AMIODARONE [Suspect]
     Active Substance: AMIODARONE
  21. VASOPRESSIN [Suspect]
     Active Substance: VASOPRESSIN
     Indication: Cardiogenic shock
  22. VASOPRESSIN [Suspect]
     Active Substance: VASOPRESSIN
     Route: 065
  23. VASOPRESSIN [Suspect]
     Active Substance: VASOPRESSIN
     Route: 065
  24. VASOPRESSIN [Suspect]
     Active Substance: VASOPRESSIN

REACTIONS (3)
  - Toxicity to various agents [Recovering/Resolving]
  - Cardiogenic shock [Recovering/Resolving]
  - Drug ineffective [Unknown]
